APPROVED DRUG PRODUCT: RIZATRIPTAN BENZOATE
Active Ingredient: RIZATRIPTAN BENZOATE
Strength: EQ 5MG BASE
Dosage Form/Route: TABLET;ORAL
Application: A207836 | Product #001
Applicant: UNICHEM LABORATORIES LTD
Approved: Mar 7, 2017 | RLD: No | RS: No | Type: DISCN